FAERS Safety Report 10069714 (Version 1)
Quarter: 2014Q2

REPORT INFORMATION
  Report Type: Spontaneous
  Country: US (occurrence: None)
  Receive Date: 20140409
  Receipt Date: 20140409
  Transmission Date: 20141212
  Serious: No
  Sender: FDA-Public Use
  Company Number: None

PATIENT
  Sex: Female

DRUGS (1)
  1. OSPHENA [Suspect]
     Indication: DYSPAREUNIA
     Dosage: 1 PILL PER DAY, ONCE DAILY, TAKEN BY MOUTH
     Route: 048

REACTIONS (3)
  - Fatigue [None]
  - Dizziness [None]
  - Tremor [None]
